FAERS Safety Report 9065383 (Version 1)
Quarter: 2013Q1

REPORT INFORMATION
  Report Type: Report from Study
  Country: US (occurrence: US)
  Receive Date: 20130131
  Receipt Date: 20130131
  Transmission Date: 20140127
  Serious: No
  Sender: FDA-Public Use
  Company Number: US-ABBOTT-12P-163-1009718-00

PATIENT
  Age: 74 Year
  Sex: Female
  Weight: 57.2 kg

DRUGS (3)
  1. HUMIRA [Suspect]
     Indication: RHEUMATOID ARTHRITIS
     Dates: start: 201206, end: 20121021
  2. PLAQUENIL (NON-ABBOTT) [Concomitant]
     Indication: RHEUMATOID ARTHRITIS
  3. LORTAB (NON-ABBOTT) [Concomitant]
     Indication: PAIN

REACTIONS (4)
  - Poor quality sleep [Not Recovered/Not Resolved]
  - Rheumatoid arthritis [Not Recovered/Not Resolved]
  - Arthralgia [Not Recovered/Not Resolved]
  - Arthralgia [Not Recovered/Not Resolved]
